FAERS Safety Report 11926442 (Version 1)
Quarter: 2016Q1

REPORT INFORMATION
  Report Type: Spontaneous
  Country: US (occurrence: None)
  Receive Date: 20160115
  Receipt Date: 20160115
  Transmission Date: 20160526
  Serious: Yes (Disabling, Other)
  Sender: FDA-Public Use
  Company Number: None

PATIENT
  Age: 60 Year
  Sex: Female
  Weight: 121.56 kg

DRUGS (1)
  1. NOVOLOG [Suspect]
     Active Substance: INSULIN ASPART
     Indication: TYPE 2 DIABETES MELLITUS
     Dosage: 2 UNITS  1 DOSE  SQ
     Route: 058
     Dates: start: 20150501

REACTIONS (6)
  - Pruritus [None]
  - Dry mouth [None]
  - Swelling [None]
  - Muscle spasms [None]
  - Erythema [None]
  - Hypoaesthesia [None]

NARRATIVE: CASE EVENT DATE: 20150501
